FAERS Safety Report 8815734 (Version 1)
Quarter: 2012Q4

REPORT INFORMATION
  Report Type: 
  Country: US (occurrence: US)
  Receive Date: 20120928
  Receipt Date: 20120928
  Transmission Date: 20130627
  Serious: Yes (Death)
  Sender: FDA-Public Use
  Company Number: US-ROCHE-1130117

PATIENT
  Sex: Female

DRUGS (4)
  1. HERCEPTIN [Suspect]
     Indication: BREAST CANCER
     Dosage: loading dose 200 mg
     Route: 065
     Dates: start: 19981201
  2. HERCEPTIN [Suspect]
     Indication: METASTASES TO CENTRAL NERVOUS SYSTEM
     Dosage: maintenance dose 100 mg
     Route: 065
  3. HERCEPTIN [Suspect]
     Indication: METASTASES TO LUNG
     Dosage: 3 vial
     Route: 065
  4. HERCEPTIN [Suspect]
     Indication: METASTASES TO LIVER

REACTIONS (1)
  - Death [Fatal]
